FAERS Safety Report 5770059-8 (Version None)
Quarter: 2008Q2

REPORT INFORMATION
  Report Type: 
  Country: None (occurrence: None)
  Receive Date: 20080613
  Receipt Date: 20080415
  Transmission Date: 20081010
  Serious: No
  Sender: FDA-Public Use
  Company Number: US-ABBOTT-08P-163-0447739-00

PATIENT
  Sex: Female
  Weight: 49.94 kg

DRUGS (8)
  1. HUMIRA [Suspect]
     Indication: CROHN'S DISEASE
     Dosage: 4 DOSES
     Route: 058
     Dates: start: 20070516, end: 20071001
  2. HUMIRA [Suspect]
     Route: 058
  3. HUMIRA [Suspect]
     Route: 058
     Dates: start: 20071029, end: 20080331
  4. PAROXETINE HCL [Concomitant]
     Indication: STRESS
     Route: 048
     Dates: start: 20060101
  5. PAROXETINE HCL [Concomitant]
     Route: 048
  6. PAROXETINE HCL [Concomitant]
     Route: 048
  7. LORAZEPAM [Concomitant]
     Indication: STRESS
     Dosage: 1-4 MG A DAY
     Route: 048
     Dates: start: 20060101
  8. LORAZEPAM [Concomitant]
     Route: 048

REACTIONS (8)
  - CATARACT [None]
  - DIARRHOEA [None]
  - FEELING ABNORMAL [None]
  - GLAUCOMA [None]
  - MALAISE [None]
  - MUSCLE SPASMS [None]
  - VOMITING [None]
  - WEIGHT DECREASED [None]
